FAERS Safety Report 15777209 (Version 1)
Quarter: 2018Q4

REPORT INFORMATION
  Report Type: Report from Study
  Country: US (occurrence: US)
  Receive Date: 20181231
  Receipt Date: 20181231
  Transmission Date: 20190205
  Serious: Yes (Other)
  Sender: FDA-Public Use
  Company Number: US-GILEAD-2018-0382291

PATIENT
  Age: 87 Year
  Sex: Male

DRUGS (1)
  1. RANOLAZINE. [Suspect]
     Active Substance: RANOLAZINE
     Indication: CHEST PAIN
     Dosage: 500 MG, BID
     Route: 048

REACTIONS (3)
  - Hypoacusis [Not Recovered/Not Resolved]
  - Blindness [Not Recovered/Not Resolved]
  - Off label use [Not Recovered/Not Resolved]
